FAERS Safety Report 15507661 (Version 1)
Quarter: 2018Q4

REPORT INFORMATION
  Report Type: Spontaneous
  Country: US (occurrence: US)
  Receive Date: 20181016
  Receipt Date: 20181016
  Transmission Date: 20190205
  Serious: No
  Sender: FDA-Public Use
  Company Number: US-SA-2018SA285119

PATIENT
  Age: 71 Year
  Sex: Female

DRUGS (7)
  1. CARBAMAZEPIN [Concomitant]
     Active Substance: CARBAMAZEPINE
  2. DULOXETINE. [Concomitant]
     Active Substance: DULOXETINE
  3. TRAZODONE [Concomitant]
     Active Substance: TRAZODONE HYDROCHLORIDE
  4. AUBAGIO [Suspect]
     Active Substance: TERIFLUNOMIDE
     Dosage: 14 MG, QD
     Route: 048
     Dates: start: 20180914
  5. NAPROXEN. [Concomitant]
     Active Substance: NAPROXEN
  6. OMEPRAZOLE. [Concomitant]
     Active Substance: OMEPRAZOLE
  7. ZYRTEC [LEVOCABASTINE HYDROCHLORIDE] [Concomitant]

REACTIONS (4)
  - Product use issue [Unknown]
  - Pelvic pain [Unknown]
  - Abdominal pain upper [Unknown]
  - Gait disturbance [Unknown]

NARRATIVE: CASE EVENT DATE: 20181009
